FAERS Safety Report 13240331 (Version 1)
Quarter: 2017Q1

REPORT INFORMATION
  Report Type: Spontaneous
  Country: IT (occurrence: IT)
  Receive Date: 20170216
  Receipt Date: 20170216
  Transmission Date: 20170428
  Serious: Yes (Other)
  Sender: FDA-Public Use
  Company Number: IT-GLAXOSMITHKLINE-IT2017GSK020893

PATIENT
  Age: 70 Year
  Sex: Female

DRUGS (1)
  1. REVINTY ELLIPTA [Suspect]
     Active Substance: FLUTICASONE FUROATE\VILANTEROL TRIFENATATE
     Indication: PNEUMONIA
     Dosage: UNK

REACTIONS (3)
  - Dyspnoea [Unknown]
  - Chest pain [Unknown]
  - Bronchospasm [Unknown]

NARRATIVE: CASE EVENT DATE: 20170203
